FAERS Safety Report 18908825 (Version 1)
Quarter: 2021Q1

REPORT INFORMATION
  Report Type: Report from Study
  Country: US (occurrence: US)
  Receive Date: 20210218
  Receipt Date: 20210218
  Transmission Date: 20210420
  Serious: Yes (Hospitalization, Other)
  Sender: FDA-Public Use
  Company Number: US-LFBP-2021000044

PATIENT

DRUGS (2)
  1. UNFRACTIONATED HEPARIN (UFH) [Concomitant]
     Indication: THROMBOSIS PROPHYLAXIS
     Route: 065
  2. ATRYN [Suspect]
     Active Substance: ANTITHROMBIN ALFA
     Indication: LUNG ASSIST DEVICE THERAPY
     Dosage: 1 BOLUS
     Route: 065

REACTIONS (2)
  - Haemorrhage [Unknown]
  - Product use in unapproved indication [Unknown]
